FAERS Safety Report 18694217 (Version 7)
Quarter: 2021Q1

REPORT INFORMATION
  Report Type: Report from Study
  Country: BR (occurrence: BR)
  Receive Date: 20210104
  Receipt Date: 20210223
  Transmission Date: 20210419
  Serious: Yes (Life-Threatening, Hospitalization)
  Sender: FDA-Public Use
  Company Number: BR-ROCHE-2739559

PATIENT
  Age: 48 Year
  Sex: Male
  Weight: 105 kg

DRUGS (59)
  1. PANTOPRAZOLE [Concomitant]
     Active Substance: PANTOPRAZOLE
     Dates: start: 20201203
  2. ROCURONIUM [Concomitant]
     Active Substance: ROCURONIUM BROMIDE
     Dates: start: 20201205
  3. OXYGEN. [Concomitant]
     Active Substance: OXYGEN
     Route: 007
     Dates: start: 20201212
  4. OXYGEN. [Concomitant]
     Active Substance: OXYGEN
     Route: 007
     Dates: start: 20201204
  5. OXYGEN. [Concomitant]
     Active Substance: OXYGEN
     Route: 007
     Dates: start: 20201208
  6. OXYGEN. [Concomitant]
     Active Substance: OXYGEN
     Route: 007
     Dates: start: 20201229
  7. OXYGEN. [Concomitant]
     Active Substance: OXYGEN
     Route: 007
     Dates: start: 20201231
  8. OXYGEN. [Concomitant]
     Active Substance: OXYGEN
     Route: 007
     Dates: start: 20210101
  9. OXYGEN. [Concomitant]
     Active Substance: OXYGEN
     Route: 007
     Dates: start: 20210102
  10. OXYGEN. [Concomitant]
     Active Substance: OXYGEN
     Dates: start: 20210104
  11. OXYGEN. [Concomitant]
     Active Substance: OXYGEN
     Dates: start: 20210106
  12. OXYGEN. [Concomitant]
     Active Substance: OXYGEN
     Dosage: TRANSTRACHEAL
     Dates: start: 20210108
  13. TOCILIZUMAB. [Suspect]
     Active Substance: TOCILIZUMAB
     Indication: COVID-19 PNEUMONIA
     Dosage: START DATE OF MOST RECENT DOSE (100 ML) OF STUDY DRUG PRIOR TO ADVERSE EVENT/SERIOUS ADVERSE EVENT:
     Route: 042
     Dates: start: 20201204
  14. NORADRENALINE [Concomitant]
     Active Substance: NOREPINEPHRINE
     Indication: HYPOTENSION
     Dates: start: 20201205
  15. OXYGEN. [Concomitant]
     Active Substance: OXYGEN
     Dosage: 21?DEC?2020, 21?DEC?2020, 23/DEC/2020
     Route: 007
     Dates: start: 20201205
  16. OXYGEN. [Concomitant]
     Active Substance: OXYGEN
     Dosage: 26/DEC/2020
     Route: 007
     Dates: start: 20201213
  17. OXYGEN. [Concomitant]
     Active Substance: OXYGEN
     Dates: start: 20210106
  18. ANIDULAFUNGIN [Concomitant]
     Active Substance: ANIDULAFUNGIN
     Indication: SEPTIC SHOCK
     Dates: start: 20201230, end: 20210106
  19. DEXTROKETAMINE [Concomitant]
     Dates: start: 20201205
  20. NORADRENALINE [Concomitant]
     Active Substance: NOREPINEPHRINE
     Dates: start: 20201204, end: 20201218
  21. NORADRENALINE [Concomitant]
     Active Substance: NOREPINEPHRINE
     Dates: start: 20201225, end: 20210108
  22. OXYGEN. [Concomitant]
     Active Substance: OXYGEN
     Dosage: 17?DEC?2020, 17?DEC?2020, 07?DEC?2020
     Route: 007
     Dates: start: 20201218
  23. OXYGEN. [Concomitant]
     Active Substance: OXYGEN
     Dosage: 28/DEC/2020, 27/DEC/2020, 29/DEC/2020
     Route: 007
     Dates: start: 20201208
  24. OXYGEN. [Concomitant]
     Active Substance: OXYGEN
     Dosage: 25/DEC/2020
     Dates: start: 20201228
  25. OXYGEN. [Concomitant]
     Active Substance: OXYGEN
     Route: 007
     Dates: start: 20201230
  26. OXYGEN. [Concomitant]
     Active Substance: OXYGEN
     Dates: start: 20210105
  27. OXYGEN. [Concomitant]
     Active Substance: OXYGEN
     Route: 007
     Dates: start: 20201215
  28. OXYGEN. [Concomitant]
     Active Substance: OXYGEN
     Dosage: TRANSTRACHEAL
     Dates: start: 20201225
  29. OXYGEN. [Concomitant]
     Active Substance: OXYGEN
     Dates: start: 20201215
  30. VANCOMYCIN [Concomitant]
     Active Substance: VANCOMYCIN
     Indication: PNEUMONIA
     Dates: start: 20201220, end: 20210101
  31. MEROPENEM. [Concomitant]
     Active Substance: MEROPENEM
     Indication: PNEUMONIA
     Dates: start: 20201224, end: 20210106
  32. REMDESIVIR. [Suspect]
     Active Substance: REMDESIVIR
     Indication: COVID-19 PNEUMONIA
     Dosage: DATE OF MOST RECENT DOSE OF STUDY DRUG PRIOR TO SERIOUS ADVERSE EVENT 13/DEC/2020 12:50 PM AND ENDED
     Route: 042
     Dates: start: 20201204
  33. CEFTRIAXONE. [Concomitant]
     Active Substance: CEFTRIAXONE
     Dates: start: 20201202
  34. OSELTAMIVIR [Concomitant]
     Active Substance: OSELTAMIVIR
     Indication: COVID-19
     Dates: start: 20201203
  35. OXYGEN. [Concomitant]
     Active Substance: OXYGEN
     Dosage: 22?DEC?2020
     Route: 007
     Dates: start: 20201219
  36. OXYGEN. [Concomitant]
     Active Substance: OXYGEN
     Route: 007
     Dates: start: 20201230
  37. OXYGEN. [Concomitant]
     Active Substance: OXYGEN
     Dosage: TRANSTRACHEAL
     Dates: start: 20210108
  38. ENOXAPARIN [Concomitant]
     Active Substance: ENOXAPARIN
     Dates: start: 20201203
  39. OXYGEN. [Concomitant]
     Active Substance: OXYGEN
     Dosage: 22?DEC?2020, 25/DEC/2020
     Route: 007
     Dates: start: 20201206
  40. OXYGEN. [Concomitant]
     Active Substance: OXYGEN
     Dosage: 16?DEC?2020
     Route: 007
     Dates: start: 20201216
  41. OXYGEN. [Concomitant]
     Active Substance: OXYGEN
     Route: 007
     Dates: start: 20201231
  42. OXYGEN. [Concomitant]
     Active Substance: OXYGEN
     Dates: start: 20210104
  43. OXYGEN. [Concomitant]
     Active Substance: OXYGEN
     Dates: start: 20210105
  44. ADRENALINE [Concomitant]
     Active Substance: EPINEPHRINE
     Indication: EPISTAXIS
     Dates: start: 20201216, end: 20201222
  45. LACTATED RINGERS SOLUTION [Concomitant]
     Active Substance: CALCIUM CHLORIDE\POTASSIUM CHLORIDE\SODIUM CHLORIDE\SODIUM LACTATE
     Dates: start: 20201205
  46. FENTANYL. [Concomitant]
     Active Substance: FENTANYL
     Dates: start: 20201205
  47. OXYGEN. [Concomitant]
     Active Substance: OXYGEN
     Dosage: 09?DEC?2020, 14?DEC?2020, 11?DEC?2020, 07?DEC?2020, 09?DEC?2020, 13?DEC?2020, 19?DEC?2020, 20?DEC?20
     Route: 007
     Dates: start: 20201210
  48. OXYGEN. [Concomitant]
     Active Substance: OXYGEN
     Route: 007
     Dates: start: 20201214
  49. OXYGEN. [Concomitant]
     Active Substance: OXYGEN
     Route: 007
     Dates: start: 20210102
  50. OXYGEN. [Concomitant]
     Active Substance: OXYGEN
     Route: 007
     Dates: start: 20210102
  51. OXYGEN. [Concomitant]
     Active Substance: OXYGEN
     Route: 007
     Dates: start: 20201209
  52. DORMONID [Concomitant]
     Active Substance: MIDAZOLAM MALEATE
     Dates: start: 20201205
  53. OXYGEN. [Concomitant]
     Active Substance: OXYGEN
     Dosage: 15 L/MIN?ON 04?DEC?2020, 04?DEC?2020
     Route: 055
     Dates: start: 20201204
  54. OXYGEN. [Concomitant]
     Active Substance: OXYGEN
     Route: 007
     Dates: start: 20210101
  55. OXYGEN. [Concomitant]
     Active Substance: OXYGEN
     Route: 007
     Dates: start: 20210103
  56. OXYGEN. [Concomitant]
     Active Substance: OXYGEN
     Dosage: TRANSTRACHEAL
     Dates: start: 20210107
  57. METOCLOPRAMIDE. [Concomitant]
     Active Substance: METOCLOPRAMIDE
     Dates: start: 20201203
  58. DIPYRONE [Concomitant]
     Active Substance: DIPYRONE
     Dates: start: 20201203
  59. OXYGEN. [Concomitant]
     Active Substance: OXYGEN
     Dosage: TRANSTRACHEAL
     Dates: start: 20210105

REACTIONS (3)
  - Urinary tract infection [Recovering/Resolving]
  - Pneumonia [Recovering/Resolving]
  - Septic shock [Recovering/Resolving]

NARRATIVE: CASE EVENT DATE: 20201218
